FAERS Safety Report 19168915 (Version 3)
Quarter: 2021Q2

REPORT INFORMATION
  Report Type: Report from Study
  Country: FR (occurrence: FR)
  Receive Date: 20210422
  Receipt Date: 20210512
  Transmission Date: 20210717
  Serious: Yes (Other)
  Sender: FDA-Public Use
  Company Number: FR-INCYTE CORPORATION-2020IN013590

PATIENT

DRUGS (12)
  1. JAKAVI [Suspect]
     Active Substance: RUXOLITINIB
     Dosage: 10 MG, BID
     Route: 048
  2. DOLIPRANE [Concomitant]
     Active Substance: ACETAMINOPHEN
     Indication: PAIN
     Dosage: 1000 UNK
     Route: 048
     Dates: start: 20190912
  3. HYDREA [Concomitant]
     Active Substance: HYDROXYUREA
     Dosage: UNK
     Route: 065
     Dates: start: 20181010, end: 20181011
  4. KARDEGIC [Concomitant]
     Active Substance: ASPIRIN DL-LYSINE
     Indication: POLYCYTHAEMIA VERA
     Dosage: 75 UNK
     Route: 048
     Dates: start: 20120525, end: 20180628
  5. BISOPROLOL [Concomitant]
     Active Substance: BISOPROLOL
     Indication: HYPERTENSION
     Dosage: 1.25 UNK
     Route: 048
     Dates: start: 20190912
  6. LASILIX [FUROSEMIDE] [Concomitant]
     Active Substance: FUROSEMIDE
     Indication: OEDEMA
     Dosage: 40 UNK
     Route: 048
     Dates: start: 20180319
  7. UVEDOSE [Concomitant]
     Active Substance: CHOLECALCIFEROL
     Indication: VITAMIN D DEFICIENCY
     Dosage: 1 UNK, Q3MO
     Route: 048
     Dates: start: 20180927
  8. UVEDOSE [Concomitant]
     Active Substance: CHOLECALCIFEROL
     Dosage: UNK
     Route: 048
     Dates: start: 20181024
  9. JAKAVI [Suspect]
     Active Substance: RUXOLITINIB
     Indication: POLYCYTHAEMIA VERA
     Dosage: 20 UNK
     Route: 048
     Dates: start: 20180926, end: 20180929
  10. EXFORGE [Concomitant]
     Active Substance: AMLODIPINE BESYLATE\VALSARTAN
     Indication: HYPERTENSION
     Dosage: 5 UNK
     Route: 048
     Dates: start: 2017
  11. ALLOPURINOL. [Concomitant]
     Active Substance: ALLOPURINOL
     Indication: GOUT
     Dosage: 200 UNK
     Route: 048
     Dates: start: 2014
  12. HYDREA [Concomitant]
     Active Substance: HYDROXYUREA
     Indication: POLYCYTHAEMIA VERA
     Dosage: 1000 UNK
     Route: 048
     Dates: start: 20140513, end: 20180717

REACTIONS (7)
  - Oedema peripheral [Not Recovered/Not Resolved]
  - Skin lesion [Recovered/Resolved]
  - Abdominal distension [Not Recovered/Not Resolved]
  - Blood lactate dehydrogenase increased [Unknown]
  - Liver injury [Not Recovered/Not Resolved]
  - Tachycardia [Recovered/Resolved]
  - Dyspnoea at rest [Not Recovered/Not Resolved]

NARRATIVE: CASE EVENT DATE: 201810
